FAERS Safety Report 24113401 (Version 2)
Quarter: 2024Q3

REPORT INFORMATION
  Report Type: Spontaneous
  Country: US (occurrence: US)
  Receive Date: 20240719
  Receipt Date: 20240719
  Transmission Date: 20241016
  Serious: Yes (Other)
  Sender: AMGEN
  Company Number: US-AMGEN-USASP2024137403

PATIENT
  Age: 18 Year
  Sex: Female

DRUGS (4)
  1. RITUXIMAB [Suspect]
     Active Substance: RITUXIMAB
     Indication: Haemolysis
     Dosage: 750 MILLIGRAM/KILOGRAM ON DAY OF ADMISSION 1 AND 14
     Route: 065
  2. EPOETIN ALFA [Suspect]
     Active Substance: ERYTHROPOIETIN
     Indication: Haemolysis
     Dosage: 200 UNITS/KILOGRAM DAILY ON DAY OF ADMISSION 2-7
     Route: 065
  3. EPOETIN ALFA [Suspect]
     Active Substance: ERYTHROPOIETIN
     Dosage: 300 UNITS/KILOGRAM DAILY ON DAY OF ADMISSION 8, 10, 12
     Route: 065
  4. Immunoglobulin [Concomitant]
     Dosage: 1 GRAM PER KILOGRAM (ON DOA 2-6)

REACTIONS (5)
  - Anaemia [Unknown]
  - Drug effective for unapproved indication [Unknown]
  - Off label use [Unknown]
  - Intermenstrual bleeding [Unknown]
  - Total complement activity decreased [Unknown]
